FAERS Safety Report 23926721 (Version 1)
Quarter: 2024Q2

REPORT INFORMATION
  Report Type: Spontaneous
  Country: US (occurrence: None)
  Receive Date: 20240531
  Receipt Date: 20240531
  Transmission Date: 20240716
  Serious: Yes (Hospitalization)
  Sender: FDA-Public Use
  Company Number: None

PATIENT
  Age: 43 Year
  Sex: Female

DRUGS (19)
  1. DALFAMPRIDINE [Suspect]
     Active Substance: DALFAMPRIDINE
     Indication: Multiple sclerosis
     Route: 048
     Dates: start: 20240405, end: 20240514
  2. SYMBICORT 80/4.5MCG (120 ORAL INH) [Concomitant]
  3. TRIAMCINOLONE ACETONIDE [Concomitant]
     Active Substance: TRIAMCINOLONE ACETONIDE
  4. ADDERALL 20MG TABLETS [Concomitant]
  5. ADDERALL XR 30MG CAPSULES [Concomitant]
  6. ALBUTEROL 0.083%(2.5MG/3ML) 25X3ML [Concomitant]
  7. ALBUTEROL HFA INH (200 PUFFS) 8.5GM [Concomitant]
  8. CELEBREX 200MG CAPSULES [Concomitant]
  9. DEPAKOTE 250MG DELAYED RELEASE TABS [Concomitant]
  10. DIAZEPAM [Concomitant]
     Active Substance: DIAZEPAM
  11. HYDROXYZINE PAMOATE 50MG CAPSULES [Concomitant]
  12. KETOCONAZOLE 2% CREAM 15GM [Concomitant]
  13. OCREVUS 300/10ML INJ, 10ML [Concomitant]
  14. PULMICORT 180MCG FLEXHALR(120PUFFS) [Concomitant]
  15. QULIPTA 10MG TABLETS [Concomitant]
  16. TOPAMAX 200MG TABLETS [Concomitant]
  17. VITAMIN D3 5,000 IU (CHOLE) TAB [Concomitant]
  18. VRAYLAR 4.5MG CAPSULES [Concomitant]
  19. ZEPBOUND 2.5MG/0.5ML INJ (4PF PENS) [Concomitant]

REACTIONS (9)
  - Hypersensitivity [None]
  - Paraesthesia [None]
  - Hypoaesthesia [None]
  - Hypoaesthesia oral [None]
  - Glossodynia [None]
  - Pharyngeal paraesthesia [None]
  - Pharyngeal hypoaesthesia [None]
  - Swollen tongue [None]
  - Pharyngeal swelling [None]

NARRATIVE: CASE EVENT DATE: 20240513
